FAERS Safety Report 8260918-9 (Version None)
Quarter: 2012Q2

REPORT INFORMATION
  Report Type: 
  Country: None (occurrence: None)
  Receive Date: 20120405
  Receipt Date: 20120327
  Transmission Date: 20120825
  Serious: No
  Sender: FDA-Public Use
  Company Number: US-PFIZER INC-2012082973

PATIENT
  Sex: Male
  Weight: 91 kg

DRUGS (2)
  1. GABAPENTIN [Suspect]
     Indication: NERVE INJURY
  2. GABAPENTIN [Suspect]
     Indication: HYPOAESTHESIA
     Dosage: 100 MG, 1X/DAY
     Dates: start: 20120326

REACTIONS (1)
  - HEART RATE INCREASED [None]
